FAERS Safety Report 14225278 (Version 1)
Quarter: 2017Q4

REPORT INFORMATION
  Report Type: Spontaneous
  Country: BE (occurrence: BE)
  Receive Date: 20171127
  Receipt Date: 20171127
  Transmission Date: 20180321
  Serious: Yes (Hospitalization)
  Sender: FDA-Public Use
  Company Number: BE-ROCHE-2025435

PATIENT
  Age: 31 Year
  Sex: Male
  Weight: 78 kg

DRUGS (9)
  1. CELLCEPT [Suspect]
     Active Substance: MYCOPHENOLATE MOFETIL\MYCOPHENOLATE MOFETIL HYDROCHLORIDE
     Route: 048
     Dates: start: 20161215
  2. EBRANTIL [Concomitant]
     Active Substance: URAPIDIL
     Route: 065
     Dates: start: 20161118, end: 20161123
  3. COVERSYL [Concomitant]
     Active Substance: PERINDOPRIL
     Route: 065
     Dates: start: 20160530, end: 20161117
  4. SELOZOK [Concomitant]
     Active Substance: METOPROLOL SUCCINATE
  5. CELLCEPT [Suspect]
     Active Substance: MYCOPHENOLATE MOFETIL\MYCOPHENOLATE MOFETIL HYDROCHLORIDE
     Indication: RENAL TRANSPLANT
     Route: 048
     Dates: start: 20150417, end: 20160801
  6. PROGRAFT [Suspect]
     Active Substance: TACROLIMUS
     Indication: RENAL TRANSPLANT
     Route: 048
     Dates: start: 20150417
  7. PREDNISOLONE. [Concomitant]
     Active Substance: PREDNISOLONE
     Route: 065
     Dates: start: 20150417, end: 20150521
  8. FELODIPINE. [Concomitant]
     Active Substance: FELODIPINE
     Route: 065
     Dates: start: 20150419
  9. TERAZOSINE [Concomitant]
     Route: 065
     Dates: start: 20160721, end: 20161123

REACTIONS (4)
  - Renal impairment [Recovered/Resolved]
  - Abdominal pain upper [Recovered/Resolved]
  - Renal artery stenosis [Recovered/Resolved]
  - Abdominal pain upper [Recovered/Resolved]

NARRATIVE: CASE EVENT DATE: 20150508
